FAERS Safety Report 12726342 (Version 6)
Quarter: 2019Q1

REPORT INFORMATION
  Report Type: Report from Study
  Country: US (occurrence: US)
  Receive Date: 20160908
  Receipt Date: 20190325
  Transmission Date: 20190417
  Serious: Yes (Hospitalization, Other)
  Sender: FDA-Public Use
  Company Number: US-SA-2016SA161918

PATIENT
  Age: 71 Year
  Sex: Female

DRUGS (3)
  1. ALEMTUZUMAB [Suspect]
     Active Substance: ALEMTUZUMAB
     Indication: MULTIPLE SCLEROSIS
     Dosage: 12 MG,QD
     Route: 041
     Dates: start: 20160613, end: 20160617
  2. LEVOTHYROXINE. [Concomitant]
     Active Substance: LEVOTHYROXINE
     Dosage: 100 UNK
  3. LEVOTHYROXINE. [Concomitant]
     Active Substance: LEVOTHYROXINE
     Indication: HYPOTHYROIDISM
     Dosage: 88 MG

REACTIONS (16)
  - Cough [Not Recovered/Not Resolved]
  - Pneumonia [Not Recovered/Not Resolved]
  - Chest X-ray abnormal [Not Recovered/Not Resolved]
  - Blood count abnormal [Recovered/Resolved]
  - Oedema [Not Recovered/Not Resolved]
  - Hypersensitivity [Unknown]
  - Chest discomfort [Not Recovered/Not Resolved]
  - Pneumonitis [Unknown]
  - Blood thyroid stimulating hormone abnormal [Unknown]
  - Anaemia [Unknown]
  - Pyrexia [Recovered/Resolved]
  - White blood cell count abnormal [Unknown]
  - White blood cell count abnormal [Not Recovered/Not Resolved]
  - Unevaluable event [Recovered/Resolved]
  - Influenza [Not Recovered/Not Resolved]
  - Urine output decreased [Recovered/Resolved]

NARRATIVE: CASE EVENT DATE: 201608
